FAERS Safety Report 9190459 (Version 1)
Quarter: 2013Q1

REPORT INFORMATION
  Report Type: Spontaneous
  Country: US (occurrence: US)
  Receive Date: 20130326
  Receipt Date: 20130326
  Transmission Date: 20140127
  Serious: Yes (Other)
  Sender: FDA-Public Use
  Company Number: US-SANOFI-AVENTIS-2013SA030549

PATIENT
  Age: 57 Year
  Sex: Male
  Weight: 79 kg

DRUGS (2)
  1. AMBIEN [Suspect]
     Route: 048
     Dates: start: 2006
  2. LOSARTAN [Concomitant]

REACTIONS (8)
  - Somnambulism [Unknown]
  - Impaired driving ability [Unknown]
  - Road traffic accident [Unknown]
  - Insomnia [Unknown]
  - Disorientation [Unknown]
  - Headache [Unknown]
  - Abdominal discomfort [Unknown]
  - Nightmare [Unknown]
